FAERS Safety Report 19456294 (Version 1)
Quarter: 2021Q2

REPORT INFORMATION
  Report Type: Spontaneous
  Country: FR (occurrence: FR)
  Receive Date: 20210624
  Receipt Date: 20210624
  Transmission Date: 20210717
  Serious: Yes (Hospitalization)
  Sender: FDA-Public Use
  Company Number: FR-TEVA-2021-FR-1924018

PATIENT
  Age: 60 Year
  Sex: Male
  Weight: 95 kg

DRUGS (5)
  1. INEXIUM [Concomitant]
     Active Substance: ESOMEPRAZOLE
     Dosage: 1 DF , THERAPY START DATE : ASKU
     Route: 048
  2. DEPAKOTE [Concomitant]
     Active Substance: DIVALPROEX SODIUM
     Dosage: 1 DF , THERAPY START DATE : ASKU
     Route: 048
     Dates: end: 20210531
  3. VENLAFAXINE [Suspect]
     Active Substance: VENLAFAXINE HYDROCHLORIDE
     Indication: MIXED ANXIETY AND DEPRESSIVE DISORDER
     Dosage: 75 MG
     Route: 048
     Dates: start: 202104, end: 20210531
  4. ABILIFY [Suspect]
     Active Substance: ARIPIPRAZOLE
     Indication: MIXED ANXIETY AND DEPRESSIVE DISORDER
     Dosage: UNKNOWN , UNIT DOSE : 1 DF , THERAPY START DATE : ASKU
     Route: 048
     Dates: end: 20210531
  5. SILDENAFIL. [Suspect]
     Active Substance: SILDENAFIL
     Indication: ERECTILE DYSFUNCTION
     Dosage: 1 ADMINISTRATION OF SILDENAFIL IN THE PREVIOUS DAYS
     Route: 048
     Dates: start: 202105, end: 202105

REACTIONS (1)
  - Thunderclap headache [Recovered/Resolved]

NARRATIVE: CASE EVENT DATE: 20210531
